FAERS Safety Report 24075769 (Version 1)
Quarter: 2024Q3

REPORT INFORMATION
  Report Type: Spontaneous
  Country: PL (occurrence: PL)
  Receive Date: 20240710
  Receipt Date: 20240710
  Transmission Date: 20241017
  Serious: Yes (Other)
  Sender: RANBAXY
  Company Number: PL-SUN PHARMACEUTICAL INDUSTRIES LTD-2024R1-455917

PATIENT
  Age: 31 Year
  Sex: Male

DRUGS (4)
  1. DEXAMETHASONE [Suspect]
     Active Substance: DEXAMETHASONE
     Indication: Pancytopenia
     Dosage: 20 MILLIGRAM
     Route: 065
  2. CYCLOSPORINE [Suspect]
     Active Substance: CYCLOSPORINE
     Indication: Pancytopenia
     Dosage: UNK
     Route: 065
  3. ETOPOSIDE [Suspect]
     Active Substance: ETOPOSIDE
     Indication: Pancytopenia
     Dosage: UNK
     Route: 065
  4. immunoglobulin [Concomitant]
     Indication: Pancytopenia
     Dosage: 15 MILLIGRAM
     Route: 065

REACTIONS (2)
  - Neutropenia [Unknown]
  - Condition aggravated [Unknown]
